FAERS Safety Report 8961467 (Version 1)
Quarter: 2012Q4

REPORT INFORMATION
  Report Type: 
  Country: MX (occurrence: MX)
  Receive Date: 20121212
  Receipt Date: 20121212
  Transmission Date: 20130627
  Serious: Yes (Other)
  Sender: FDA-Public Use
  Company Number: PHHY2012MX114226

PATIENT
  Sex: Female

DRUGS (2)
  1. EVEROLIMUS [Suspect]
     Indication: BREAST CANCER
  2. EXEMESTANE [Concomitant]
     Indication: BREAST CANCER

REACTIONS (1)
  - Liver injury [Unknown]
